FAERS Safety Report 9826083 (Version 2)
Quarter: 2014Q1

REPORT INFORMATION
  Report Type: Spontaneous
  Country: US (occurrence: None)
  Receive Date: 20131104
  Receipt Date: 20140313
  Transmission Date: 20141002
  Serious: Yes (Hospitalization)
  Sender: FDA-Public Use
  Company Number: 1000049070

PATIENT
  Age: 64 Year
  Sex: Female
  Weight: 57.6 kg

DRUGS (12)
  1. DALIRESP [Suspect]
     Indication: CHRONIC OBSTRUCTIVE PULMONARY DISEASE
     Dosage: 1000 MCG (500 MCG, 2 IN 1 D), ORAL
     Route: 048
     Dates: start: 201204, end: 201206
  2. OMEPRAZOLE (OMEPRAZOLE) [Concomitant]
  3. SINGULAIR [Concomitant]
  4. ZOLOFT (SERTRALINE HYDROCHLORIDE) [Concomitant]
  5. SPIRIVA (TIOTROPIUM BROMIDE) [Concomitant]
  6. BUPROPION (BUPROPION) [Concomitant]
  7. ZYRTEC (CETIRIZINE HYDROCHLORIDE) [Concomitant]
  8. MUCINEX [Concomitant]
  9. BUSPIRONE (BUSPIRONE) [Concomitant]
  10. FLUTICASONE PROPIONATE (FLUTICASONE PROPIONATE) [Concomitant]
  11. SYMBICORT [Concomitant]
  12. ADVAIR  (FLUTICASONE, SALMETEROL) [Concomitant]

REACTIONS (5)
  - Chronic obstructive pulmonary disease [None]
  - Nausea [None]
  - Weight decreased [None]
  - Prescribed overdose [None]
  - Intentional drug misuse [None]
